FAERS Safety Report 25289271 (Version 1)
Quarter: 2025Q2

REPORT INFORMATION
  Report Type: Spontaneous
  Country: US (occurrence: None)
  Receive Date: 20250506
  Receipt Date: 20250506
  Transmission Date: 20250717
  Serious: Yes (Other)
  Sender: FDA-CTU
  Company Number: None

PATIENT
  Age: 37 Year
  Sex: Female
  Weight: 71.52 kg

DRUGS (1)
  1. ADALIMUMAB-ADBM [Suspect]
     Active Substance: ADALIMUMAB-ADBM
     Indication: Axial spondyloarthritis
     Route: 058
     Dates: start: 20250422

REACTIONS (1)
  - Decreased appetite [None]

NARRATIVE: CASE EVENT DATE: 20250429
